FAERS Safety Report 9967136 (Version 1)
Quarter: 2014Q1

REPORT INFORMATION
  Report Type: Spontaneous
  Country: US (occurrence: US)
  Receive Date: 20140305
  Receipt Date: 20140305
  Transmission Date: 20141002
  Serious: No
  Sender: FDA-Public Use
  Company Number: US-ABBVIE-13P-163-1139396-00

PATIENT
  Sex: Female
  Weight: 69.92 kg

DRUGS (12)
  1. HUMIRA [Suspect]
     Indication: RHEUMATOID ARTHRITIS
     Dates: start: 2009
  2. FOLIC ACID [Concomitant]
     Indication: VITAMIN SUPPLEMENTATION
  3. NEXIUM [Concomitant]
     Indication: HIATUS HERNIA
  4. LYRICA [Concomitant]
     Indication: PAIN IN EXTREMITY
  5. ALLOPURINOL [Concomitant]
     Indication: GOUT
  6. VITAMIN D [Concomitant]
     Indication: VITAMIN D DEFICIENCY
  7. KIONEX [Concomitant]
     Indication: BLOOD POTASSIUM INCREASED
  8. LOSARTAN [Concomitant]
     Indication: HYPERTENSION
  9. ATORVASTATIN [Concomitant]
     Indication: BLOOD CHOLESTEROL INCREASED
  10. METOPROLOL [Concomitant]
     Indication: PRODUCT USED FOR UNKNOWN INDICATION
  11. AMLODIPINE [Concomitant]
     Indication: PRODUCT USED FOR UNKNOWN INDICATION
  12. LUMIGAN [Concomitant]
     Indication: GLAUCOMA

REACTIONS (1)
  - Injection site pain [Not Recovered/Not Resolved]
